FAERS Safety Report 24962586 (Version 2)
Quarter: 2025Q2

REPORT INFORMATION
  Report Type: Report from Study
  Country: US (occurrence: US)
  Receive Date: 20250212
  Receipt Date: 20250418
  Transmission Date: 20250717
  Serious: Yes (Hospitalization)
  Sender: JOHNSON AND JOHNSON
  Company Number: US-JNJFOC-20250204438

PATIENT
  Age: 58 Year
  Sex: Male
  Weight: 89.6 kg

DRUGS (27)
  1. SPRAVATO [Suspect]
     Active Substance: ESKETAMINE
     Indication: Depression
     Route: 045
     Dates: start: 20240729, end: 20240802
  2. SPRAVATO [Suspect]
     Active Substance: ESKETAMINE
     Dosage: ^84 MG, 18 TOTAL DOSES^
     Route: 045
     Dates: start: 20240805, end: 20241202
  3. ALENDRONATE SODIUM [Concomitant]
     Active Substance: ALENDRONATE SODIUM
     Dosage: 1 TABLET BY MOUTH WITH 8 OZ WATER 30 MINUTES BEFORE 1ST MEAL/DRINK, NO LYING DOWN FOR 30 MINUTES (BO
     Route: 048
  4. ARIPIPRAZOLE [Concomitant]
     Active Substance: ARIPIPRAZOLE
     Dosage: OUTPATIENT
     Route: 048
  5. ASPIRIN [Concomitant]
     Active Substance: ASPIRIN
     Dosage: MORNING
     Route: 048
  6. ATORVASTATIN CALCIUM [Concomitant]
     Active Substance: ATORVASTATIN CALCIUM
     Route: 048
  7. AZATHIOPRINE [Concomitant]
     Active Substance: AZATHIOPRINE
     Dosage: MORNING
     Route: 048
  8. BARIUM SULFATE [Concomitant]
     Active Substance: BARIUM SULFATE
     Route: 048
  9. BISACODYL [Concomitant]
     Active Substance: BISACODYL
     Dosage: ORAL ONE TIME, FOLLOW VIRTUAL COLONOGRAPHY PREP INSTRUCTIONS TO BE DISPENSED WITH PREP AND CONTRAST
     Route: 048
  10. CHOLECALCIFEROL [Concomitant]
     Active Substance: CHOLECALCIFEROL
  11. DIATRIZOATE MEGLUMINE [Concomitant]
     Active Substance: DIATRIZOATE MEGLUMINE
  12. FLUTICASONE PROPIONATE [Concomitant]
     Active Substance: FLUTICASONE PROPIONATE
  13. INSULIN GLARGINE [Concomitant]
     Active Substance: INSULIN GLARGINE
  14. INSULIN LISPRO [Concomitant]
     Active Substance: INSULIN LISPRO
  15. LISINOPRIL [Concomitant]
     Active Substance: LISINOPRIL
     Route: 048
  16. LORAZEPAM [Concomitant]
     Active Substance: LORAZEPAM
     Dosage: 1 TABLET BY MOUTH AT BEDTIME IF NEEDED
     Route: 048
  17. OMEPRAZOLE [Concomitant]
     Active Substance: OMEPRAZOLE
     Dosage: BEFORE MEALS
     Route: 048
  18. OXYCODONE HYDROCHLORIDE [Concomitant]
     Active Substance: OXYCODONE HYDROCHLORIDE
  19. POLYETHYLENE GLYCOL 3350 [Concomitant]
     Active Substance: POLYETHYLENE GLYCOL 3350
  20. PIOGLITAZONE [Concomitant]
     Active Substance: PIOGLITAZONE
     Dosage: OUTPATIENT
     Route: 048
  21. PREGABALIN [Concomitant]
     Active Substance: PREGABALIN
     Route: 048
  22. TACROLIMUS [Concomitant]
     Active Substance: TACROLIMUS
     Route: 048
  23. TIZANIDINE [Concomitant]
     Active Substance: TIZANIDINE
     Route: 048
  24. URSODIOL [Concomitant]
     Active Substance: URSODIOL
     Route: 048
  25. VENLAFAXINE [Concomitant]
     Active Substance: VENLAFAXINE HYDROCHLORIDE
     Dosage: OUTPATIENT
     Route: 048
  26. VORTIOXETINE HYDROBROMIDE [Concomitant]
     Active Substance: VORTIOXETINE HYDROBROMIDE
     Indication: Major depression
     Route: 048
  27. ZALEPLON [Concomitant]
     Active Substance: ZALEPLON
     Route: 048

REACTIONS (4)
  - Drug abuse [Recovered/Resolved]
  - Fall [Recovered/Resolved]
  - Rib fracture [Recovered/Resolved]
  - Concussion [Recovered/Resolved]

NARRATIVE: CASE EVENT DATE: 20241205
